FAERS Safety Report 5564947-5 (Version None)
Quarter: 2007Q4

REPORT INFORMATION
  Report Type: 
  Country: None (occurrence: None)
  Receive Date: 20071218
  Receipt Date: 20071212
  Transmission Date: 20080405
  Serious: Yes (Other)
  Sender: FDA-Public Use
  Company Number: B0496513A

PATIENT
  Age: 12 Year
  Sex: Male
  Weight: 35 kg

DRUGS (1)
  1. MALARONE [Suspect]
     Indication: MALARIA PROPHYLAXIS
     Dosage: .75TAB PER DAY
     Route: 048
     Dates: start: 20071115, end: 20071120

REACTIONS (3)
  - EYE SWELLING [None]
  - RASH GENERALISED [None]
  - SWELLING FACE [None]
